FAERS Safety Report 8092684-4 (Version None)
Quarter: 2012Q1

REPORT INFORMATION
  Report Type: 
  Country: None (occurrence: None)
  Receive Date: 20120128
  Receipt Date: 20110725
  Transmission Date: 20120608
  Serious: No
  Sender: FDA-Public Use
  Company Number: US-ABBOTT-11P-163-0841633-00

PATIENT
  Sex: Female
  Weight: 59.928 kg

DRUGS (7)
  1. HUMIRA [Suspect]
     Indication: COLITIS
     Route: 058
     Dates: start: 20110701
  2. UNKNOWN PAIN PILL [Concomitant]
     Indication: PAIN
     Dosage: AT BEDTIME
  3. GLIMEPIRIDE [Concomitant]
     Indication: DIABETES MELLITUS
  4. HUMIRA [Suspect]
     Indication: PSORIATIC ARTHROPATHY
     Route: 058
     Dates: start: 20090101, end: 20110701
  5. ZOCOR [Concomitant]
     Indication: BLOOD CHOLESTEROL INCREASED
  6. MIRAPEX [Concomitant]
     Indication: RESTLESS LEGS SYNDROME
  7. LEVOTHYROXINE SODIUM [Concomitant]
     Indication: HYPOTHYROIDISM

REACTIONS (2)
  - NODULE [None]
  - PAIN [None]
